FAERS Safety Report 6281641-6 (Version None)
Quarter: 2009Q3

REPORT INFORMATION
  Report Type: 
  Country: None (occurrence: None)
  Receive Date: 20090724
  Receipt Date: 20090515
  Transmission Date: 20100115
  Serious: Yes (Hospitalization)
  Sender: FDA-Public Use
  Company Number: A0786139A

PATIENT
  Age: 57 Year
  Sex: Female
  Weight: 85 kg

DRUGS (4)
  1. AVANDIA [Suspect]
     Dosage: 4MG PER DAY
     Route: 065
     Dates: start: 20020401, end: 20070220
  2. GLUCOPHAGE [Concomitant]
     Dates: start: 19980501
  3. METFORMIN HCL [Concomitant]
     Dates: start: 19980501
  4. ATENOLOL [Concomitant]

REACTIONS (3)
  - CARDIAC FAILURE CONGESTIVE [None]
  - DYSPNOEA [None]
  - PULMONARY OEDEMA [None]
